FAERS Safety Report 9740696 (Version 2)
Quarter: 2013Q4

REPORT INFORMATION
  Report Type: Spontaneous
  Country: US (occurrence: US)
  Receive Date: 20131209
  Receipt Date: 20131227
  Transmission Date: 20140711
  Serious: Yes (Death)
  Sender: FDA-Public Use
  Company Number: US-PFIZER INC-2013349025

PATIENT
  Age: 63 Year
  Sex: Female

DRUGS (1)
  1. SUTENT [Suspect]
     Indication: NEOPLASM MALIGNANT
     Dosage: 25 MG, 1X/DAY (QD)
     Route: 048
     Dates: start: 20130918, end: 20131129

REACTIONS (1)
  - Death [Fatal]
